FAERS Safety Report 24784296 (Version 1)
Quarter: 2024Q4

REPORT INFORMATION
  Report Type: Spontaneous
  Country: SE (occurrence: SE)
  Receive Date: 20241227
  Receipt Date: 20241227
  Transmission Date: 20250115
  Serious: Yes (Hospitalization)
  Sender: EISAI
  Company Number: SE-Eisai-EC-2024-181412

PATIENT
  Age: 67 Year
  Sex: Female

DRUGS (8)
  1. LENVIMA [Suspect]
     Active Substance: LENVATINIB
     Indication: Product used for unknown indication
     Dosage: FREQUENCY UNKNOWN
     Route: 048
     Dates: start: 20230905, end: 20230912
  2. LENVIMA [Suspect]
     Active Substance: LENVATINIB
     Dosage: FREQUENCY UNKNOWN
     Route: 048
     Dates: start: 20230915, end: 20230919
  3. LENVIMA [Suspect]
     Active Substance: LENVATINIB
     Dosage: FREQUENCY UNKNOWN
     Route: 048
     Dates: start: 20230925, end: 20230929
  4. LENVIMA [Suspect]
     Active Substance: LENVATINIB
     Dosage: FREQUENCY UNKNOWN
     Route: 048
     Dates: start: 20231003
  5. LENVIMA [Suspect]
     Active Substance: LENVATINIB
     Dosage: FREQUENCY UNKNOWN
     Route: 048
     Dates: start: 20240206, end: 20240518
  6. LENVIMA [Suspect]
     Active Substance: LENVATINIB
     Dosage: FREQUENCY UNKNOWN
     Route: 048
     Dates: start: 20240626, end: 20240719
  7. PEMBROLIZUMAB [Suspect]
     Active Substance: PEMBROLIZUMAB
     Indication: Product used for unknown indication
     Dosage: DRUG AN FREQUENCY UNKNOWN
     Dates: start: 20230905
  8. PREDNISOLONE [Concomitant]
     Active Substance: PREDNISOLONE
     Indication: Polymyalgia rheumatica

REACTIONS (3)
  - Vomiting [Unknown]
  - Nausea [Unknown]
  - Appendicitis [Unknown]

NARRATIVE: CASE EVENT DATE: 20240717
